FAERS Safety Report 22179891 (Version 1)
Quarter: 2023Q2

REPORT INFORMATION
  Report Type: Report from Study
  Country: EG (occurrence: EG)
  Receive Date: 20230406
  Receipt Date: 20230406
  Transmission Date: 20230721
  Serious: Yes (Other)
  Sender: FDA-Public Use
  Company Number: EG-002147023-NVSC2022EG222547

PATIENT
  Age: 36 Year
  Sex: Male

DRUGS (3)
  1. COSENTYX [Suspect]
     Active Substance: SECUKINUMAB
     Indication: Ankylosing spondylitis
     Dosage: 150 MG, QMO
     Route: 058
     Dates: start: 20220925, end: 20230315
  2. LIVERIN [Concomitant]
     Indication: Supplementation therapy
     Dosage: 1 DOSAGE FORM, QD (AT NIGHT) (1 MONTHS AGO) (COMPLEMANTRY SUPPLEMENT)
     Route: 065
  3. MULTIRELAX [Concomitant]
     Indication: Product used for unknown indication
     Dosage: 1 DOSAGE FORM, QD
     Route: 065

REACTIONS (3)
  - Hepatic steatosis [Unknown]
  - Concomitant disease aggravated [Unknown]
  - Injection site discolouration [Recovered/Resolved]

NARRATIVE: CASE EVENT DATE: 20220925
